FAERS Safety Report 22921423 (Version 2)
Quarter: 2024Q3

REPORT INFORMATION
  Report Type: Spontaneous
  Country: US (occurrence: None)
  Receive Date: 20230908
  Receipt Date: 20240906
  Transmission Date: 20241017
  Serious: No
  Sender: DOMPE FARMACEUTICI
  Company Number: US-FARMAPROD-202306-1773

PATIENT
  Sex: Female

DRUGS (17)
  1. OXERVATE [Suspect]
     Active Substance: CENEGERMIN-BKBJ
     Indication: Neurotrophic keratopathy
     Route: 047
     Dates: start: 20230605
  2. OXERVATE [Suspect]
     Active Substance: CENEGERMIN-BKBJ
     Dosage: FOUR TIMES DAILY FOR A WEEK
     Route: 047
  3. OXERVATE [Suspect]
     Active Substance: CENEGERMIN-BKBJ
     Dosage: FIFTH TIME DAILY FOR A WEEK
     Route: 047
  4. OXERVATE [Suspect]
     Active Substance: CENEGERMIN-BKBJ
  5. REPHRESH GEL [Concomitant]
  6. VITAMIN C [Concomitant]
     Active Substance: ASCORBIC ACID
  7. VITAMIN D-400 [Concomitant]
  8. BUDESONIDE [Concomitant]
     Active Substance: BUDESONIDE
  9. CYCLOBENZAPRINE HYDROCHLORIDE [Concomitant]
     Active Substance: CYCLOBENZAPRINE HYDROCHLORIDE
  10. MAGNESIUM [Concomitant]
     Active Substance: MAGNESIUM
  11. MOMETASONE FUROATE [Concomitant]
     Active Substance: MOMETASONE FUROATE
  12. TRIAMCINOLONE ACETONIDE [Concomitant]
     Active Substance: TRIAMCINOLONE ACETONIDE
  13. IRON [Concomitant]
     Active Substance: IRON
     Dosage: 325 (65) MG
  14. MELOXICAM [Concomitant]
     Active Substance: MELOXICAM
  15. RESTASIS [Concomitant]
     Active Substance: CYCLOSPORINE
  16. METHOTREXATE [Concomitant]
     Active Substance: METHOTREXATE
  17. SERTRALINE HYDROCHLORIDE [Concomitant]
     Active Substance: SERTRALINE HYDROCHLORIDE

REACTIONS (4)
  - Eye pain [Recovered/Resolved]
  - Headache [Not Recovered/Not Resolved]
  - Photophobia [Unknown]
  - Off label use [Unknown]
